FAERS Safety Report 13611269 (Version 1)
Quarter: 2017Q2

REPORT INFORMATION
  Report Type: Spontaneous
  Country: US (occurrence: US)
  Receive Date: 20170604
  Receipt Date: 20170604
  Transmission Date: 20170830
  Serious: No
  Sender: FDA-Public Use
  Company Number: None

PATIENT
  Age: 43 Year
  Sex: Female
  Weight: 56.25 kg

DRUGS (3)
  1. SYNTHROID [Concomitant]
     Active Substance: LEVOTHYROXINE SODIUM
  2. ADVIL [Concomitant]
     Active Substance: IBUPROFEN
  3. BOTOX [Suspect]
     Active Substance: ONABOTULINUMTOXINA
     Indication: SKIN WRINKLING
     Route: 058
     Dates: start: 20170503, end: 20170503

REACTIONS (8)
  - Injection site swelling [None]
  - Anxiety [None]
  - Nervousness [None]
  - Heart rate increased [None]
  - Dizziness postural [None]
  - Panic disorder [None]
  - Injection site erythema [None]
  - Injection site pain [None]

NARRATIVE: CASE EVENT DATE: 20170503
